FAERS Safety Report 9174823 (Version 10)
Quarter: 2013Q3

REPORT INFORMATION
  Report Type: Spontaneous
  Country: JP (occurrence: JP)
  Receive Date: 20130320
  Receipt Date: 20130719
  Transmission Date: 20140515
  Serious: Yes (Hospitalization, Other)
  Sender: FDA-Public Use
  Company Number: JP-VERTEX PHARMACEUTICALS INC.-2013-003732

PATIENT
  Age: 61 Year
  Sex: Female

DRUGS (13)
  1. TELAVIC [Suspect]
     Indication: CHRONIC HEPATITIS C
     Dosage: 1500 MG, QD
     Route: 048
     Dates: start: 20130117, end: 20130307
  2. PEGINTRON [Suspect]
     Indication: CHRONIC HEPATITIS C
     Dosage: 1.0 ?G/KG, QW
     Route: 058
     Dates: start: 20130117, end: 20130206
  3. PEGINTRON [Suspect]
     Dosage: 0.75 ?G/KG, QW
     Route: 058
     Dates: start: 20130207, end: 20130228
  4. REBETOL [Suspect]
     Indication: CHRONIC HEPATITIS C
     Dosage: 600 MG, QD
     Route: 048
     Dates: start: 20130117, end: 20130206
  5. REBETOL [Suspect]
     Dosage: 200 MG, QD
     Route: 048
     Dates: start: 20130207, end: 20130213
  6. REBETOL [Suspect]
     Dosage: 200 MG, QD
     Route: 048
     Dates: start: 20130221, end: 20130228
  7. REBETOL [Suspect]
     Dosage: 400 MG, QD
     Route: 048
     Dates: start: 20130228, end: 20130306
  8. ALLOPURINOL [Suspect]
     Indication: PROPHYLAXIS
     Dosage: 100 MG, QD
     Route: 048
     Dates: start: 20130117, end: 20130307
  9. OLMETEC [Suspect]
     Indication: PROPHYLAXIS
     Dosage: 20 MG, QD
     Route: 048
     Dates: start: 20130117, end: 20130307
  10. LAXOBERON [Suspect]
     Indication: CONSTIPATION
     Dosage: 10 DROPS, QD/PRN
     Route: 048
     Dates: start: 20130123, end: 20130307
  11. MAGMITT [Suspect]
     Indication: CONSTIPATION
     Dosage: 330 MG, QD
     Route: 048
     Dates: start: 20130127, end: 20130203
  12. MYSER [Concomitant]
     Dosage: 100 G, QD
     Route: 061
     Dates: start: 20130228
  13. PLASTIBASE [Concomitant]
     Dosage: 100 G, QD
     Route: 051
     Dates: start: 20130228

REACTIONS (2)
  - Eosinophil count increased [Recovered/Resolved]
  - Drug eruption [Recovered/Resolved]
